FAERS Safety Report 22332541 (Version 2)
Quarter: 2023Q2

REPORT INFORMATION
  Report Type: Spontaneous
  Country: US (occurrence: US)
  Receive Date: 20230517
  Receipt Date: 20230607
  Transmission Date: 20230721
  Serious: Yes (Other)
  Sender: FDA-Public Use
  Company Number: US-INCYTE CORPORATION-2023IN004800

PATIENT

DRUGS (6)
  1. JAKAFI [Suspect]
     Active Substance: RUXOLITINIB
     Indication: Graft versus host disease in gastrointestinal tract
     Dosage: 5 MILLIGRAM, BID
     Route: 048
     Dates: start: 20230313, end: 20230429
  2. JAKAFI [Suspect]
     Active Substance: RUXOLITINIB
     Indication: Graft versus host disease in skin
  3. TACROLIMUS [Suspect]
     Active Substance: TACROLIMUS
     Indication: Multisystem inflammatory syndrome
     Route: 065
  4. TACROLIMUS [Suspect]
     Active Substance: TACROLIMUS
     Indication: Graft versus host disease
  5. TRAMETINIB [Suspect]
     Active Substance: TRAMETINIB
     Indication: Multisystem inflammatory syndrome
     Route: 065
  6. TRAMETINIB [Suspect]
     Active Substance: TRAMETINIB
     Indication: Graft versus host disease

REACTIONS (2)
  - Viraemia [Unknown]
  - Adenovirus infection [Unknown]
